FAERS Safety Report 8880700 (Version 2)
Quarter: 2012Q4

REPORT INFORMATION
  Report Type: 
  Country: US (occurrence: US)
  Receive Date: 20121101
  Receipt Date: 20121228
  Transmission Date: 20130627
  Serious: Yes (Hospitalization)
  Sender: FDA-Public Use
  Company Number: US-GLAXOSMITHKLINE-A0833040A

PATIENT
  Sex: Female

DRUGS (1)
  1. AVANDIA [Suspect]
     Indication: DIABETES MELLITUS
     Route: 048

REACTIONS (6)
  - Cardiac failure congestive [Unknown]
  - Spinal fracture [Unknown]
  - Pulmonary oedema [Unknown]
  - Cardiovascular disorder [Unknown]
  - Rib fracture [Unknown]
  - Supraventricular tachycardia [Unknown]
